FAERS Safety Report 5697577-5 (Version None)
Quarter: 2008Q2

REPORT INFORMATION
  Report Type: 
  Country: None (occurrence: None)
  Receive Date: 20080408
  Receipt Date: 20080331
  Transmission Date: 20081010
  Serious: Yes (Other)
  Sender: FDA-Public Use
  Company Number: US-JNJFOC-20080400410

PATIENT
  Sex: Female
  Weight: 68.04 kg

DRUGS (6)
  1. DURAGESIC-100 [Suspect]
     Indication: BACK PAIN
     Dosage: 100 AND 25UG PATCHES
     Route: 062
  2. FELDENE [Suspect]
     Indication: ARTHRITIS
     Route: 048
  3. VITAMIN B-12 [Concomitant]
     Indication: ANAEMIA
     Route: 058
  4. CYMBALTA [Concomitant]
     Indication: DEPRESSION
     Route: 048
  5. KLONOPIN [Concomitant]
     Indication: ANXIETY
     Route: 048
  6. ZESTRIL [Concomitant]
     Indication: HYPERTENSION
     Route: 048

REACTIONS (8)
  - ARTHRITIS [None]
  - BLADDER PROLAPSE [None]
  - CONSTIPATION [None]
  - EXPIRED DRUG ADMINISTERED [None]
  - GASTRIC DISORDER [None]
  - HYPERTENSION [None]
  - THYROID DISORDER [None]
  - WEIGHT INCREASED [None]
